FAERS Safety Report 21753250 (Version 3)
Quarter: 2023Q2

REPORT INFORMATION
  Report Type: Spontaneous
  Country: US (occurrence: US)
  Receive Date: 20221220
  Receipt Date: 20230504
  Transmission Date: 20230722
  Serious: No
  Sender: FDA-Public Use
  Company Number: US-SANOFI-01407191

PATIENT
  Age: 68 Year
  Sex: Female

DRUGS (1)
  1. DUPIXENT [Suspect]
     Active Substance: DUPILUMAB
     Indication: Infection parasitic
     Dosage: 300 MG, QOW

REACTIONS (13)
  - Injection site pain [Unknown]
  - Injection site urticaria [Recovered/Resolved]
  - Onychoclasis [Recovered/Resolved]
  - Rash [Recovered/Resolved]
  - Skin discolouration [Recovered/Resolved]
  - Skin lesion [Recovered/Resolved]
  - Paronychia [Recovered/Resolved]
  - Condition aggravated [Recovered/Resolved]
  - Drug effective for unapproved indication [Unknown]
  - Product dose omission issue [Unknown]
  - Accidental exposure to product [Unknown]
  - Therapeutic response unexpected [Unknown]
  - Accidental exposure to product [Unknown]

NARRATIVE: CASE EVENT DATE: 20230101
